FAERS Safety Report 5633530-5 (Version None)
Quarter: 2008Q1

REPORT INFORMATION
  Report Type: 
  Country: None (occurrence: None)
  Receive Date: 20080221
  Receipt Date: 20080207
  Transmission Date: 20080703
  Serious: Yes (Hospitalization, Other)
  Sender: FDA-Public Use
  Company Number: TR-ELI_LILLY_AND_COMPANY-TR200802004049

PATIENT
  Age: 38 Year
  Sex: Female
  Weight: 47 kg

DRUGS (6)
  1. HUMULIN R [Suspect]
     Indication: DIABETES MELLITUS
     Dosage: 10 IU, 2/D
     Route: 058
  2. HUMULIN R [Suspect]
     Dosage: 12 IU, DAILY (1/D)
     Route: 058
  3. HUMULIN N [Suspect]
     Indication: DIABETES MELLITUS
     Dosage: 12 UNITS/NIGHT
     Route: 058
  4. LEVOTHYROXINE SODIUM [Concomitant]
     Indication: THYROID DISORDER
     Dosage: ONCE DAILY
     Route: 048
  5. CORTISONE [Concomitant]
     Indication: RENAL FAILURE
     Dosage: 1 D/F, EACH MORNING
     Route: 048
  6. CORTISONE [Concomitant]
     Dosage: 0.5 D/F, EACH EVENING
     Route: 048

REACTIONS (4)
  - ABORTION [None]
  - BLOOD GLUCOSE INCREASED [None]
  - DRUG EXPOSURE DURING PREGNANCY [None]
  - SWELLING FACE [None]
